FAERS Safety Report 16222022 (Version 1)
Quarter: 2019Q2

REPORT INFORMATION
  Report Type: Spontaneous
  Country: US (occurrence: US)
  Receive Date: 20190422
  Receipt Date: 20190422
  Transmission Date: 20190711
  Serious: No
  Sender: FDA-Public Use
  Company Number: US-JNJFOC-20190333723

PATIENT
  Sex: Male
  Weight: 102.06 kg

DRUGS (3)
  1. NEUTROGENA T/GEL THERAPEUTIC SHAMPOO ORIGINAL [Suspect]
     Active Substance: COAL TAR
     Indication: DANDRUFF
     Dosage: DIME SIZE OFF AND ON
     Route: 061
  2. HEAD AND SHOULDERS [Suspect]
     Active Substance: PYRITHIONE ZINC
     Indication: DANDRUFF
     Dosage: DIME SIZE OFF AND ON
     Route: 061
  3. NIZORAL [Suspect]
     Active Substance: KETOCONAZOLE
     Indication: DANDRUFF
     Dosage: DIME SIZE OFF AND ON
     Route: 061

REACTIONS (1)
  - Therapeutic product effect incomplete [Unknown]
